FAERS Safety Report 10450116 (Version 2)
Quarter: 2014Q4

REPORT INFORMATION
  Report Type: Spontaneous
  Country: US (occurrence: US)
  Receive Date: 20140912
  Receipt Date: 20141016
  Transmission Date: 20150528
  Serious: Yes (Hospitalization, Other)
  Sender: FDA-Public Use
  Company Number: US-SA-2014SA122158

PATIENT
  Age: 53 Year
  Sex: Female

DRUGS (3)
  1. MULTAQ [Suspect]
     Active Substance: DRONEDARONE
     Indication: HEART RATE IRREGULAR
     Route: 048
     Dates: start: 20140404
  2. PREVACID [Concomitant]
     Active Substance: LANSOPRAZOLE
     Dates: start: 2000
  3. MULTAQ [Suspect]
     Active Substance: DRONEDARONE
     Indication: ATRIAL FIBRILLATION
     Route: 048
     Dates: start: 20140404

REACTIONS (6)
  - Heart rate decreased [Unknown]
  - Hospitalisation [Unknown]
  - Blood pressure decreased [Unknown]
  - Therapeutic response decreased [Unknown]
  - Heart valve replacement [Unknown]
  - Malaise [Unknown]
